FAERS Safety Report 13873620 (Version 2)
Quarter: 2017Q3

REPORT INFORMATION
  Report Type: Spontaneous
  Country: IN (occurrence: IN)
  Receive Date: 20170816
  Receipt Date: 20170822
  Transmission Date: 20171127
  Serious: Yes (Other)
  Sender: FDA-Public Use
  Company Number: IN-BAYER-2017-154365

PATIENT
  Age: 34 Year
  Sex: Male

DRUGS (1)
  1. CHLORPHENIRAMINE MALEATE. [Suspect]
     Active Substance: CHLORPHENIRAMINE MALEATE
     Indication: SLEEP DISORDER THERAPY
     Dosage: 15 DF, QD (4 MG PER TABLET, 60 MG PER DAY)

REACTIONS (15)
  - Drug dependence [None]
  - Mania [None]
  - Euphoric mood [None]
  - Insomnia [None]
  - Restlessness [None]
  - Abnormal behaviour [None]
  - Decreased appetite [None]
  - Mood altered [None]
  - Logorrhoea [None]
  - Drug withdrawal syndrome [None]
  - Inappropriate affect [None]
  - Bipolar disorder [None]
  - Psychomotor hyperactivity [None]
  - Delusion of grandeur [None]
  - Intentional product misuse [None]
